FAERS Safety Report 5988461-8 (Version None)
Quarter: 2008Q4

REPORT INFORMATION
  Report Type: 
  Country: None (occurrence: None)
  Receive Date: 20081208
  Receipt Date: 20081208
  Transmission Date: 20090506
  Serious: No
  Sender: FDA-Public Use
  Company Number: None

PATIENT
  Age: 62 Year
  Sex: Female
  Weight: 63.5036 kg

DRUGS (1)
  1. BONIVA [Suspect]
     Indication: OSTEOPOROSIS PROPHYLAXIS
     Dosage: 1 TABLET ONCE A MONTH PO
     Route: 048
     Dates: start: 20071013, end: 20080702

REACTIONS (5)
  - FATIGUE [None]
  - HEADACHE [None]
  - INFLUENZA [None]
  - PAIN [None]
  - PAIN IN EXTREMITY [None]
